FAERS Safety Report 13477902 (Version 2)
Quarter: 2017Q2

REPORT INFORMATION
  Report Type: Report from Study
  Country: None (occurrence: CA)
  Receive Date: 20170424
  Receipt Date: 20170511
  Transmission Date: 20170830
  Serious: No
  Sender: FDA-Public Use
  Company Number: CA-ABBVIE-17P-028-1949004-00

PATIENT
  Sex: Male
  Weight: 70 kg

DRUGS (2)
  1. MODERIBA [Suspect]
     Active Substance: RIBAVIRIN
     Indication: HEPATITIS C
     Route: 048
     Dates: start: 20170214
  2. HOLKIRA PAK [Suspect]
     Active Substance: DASABUVIR\OMBITASVIR\PARITAPREVIR\RITONAVIR
     Indication: HEPATITIS C
     Dosage: TWO OMBITASVIR/PARITAPREVIR/RITONAVIR TABLETS 1 X DAY AND ONE DASABUVIR TABLET 2 X DAY
     Route: 048
     Dates: start: 20170214

REACTIONS (3)
  - Cystitis [Not Recovered/Not Resolved]
  - Stress [Unknown]
  - Fatigue [Unknown]
